FAERS Safety Report 10608146 (Version 1)
Quarter: 2014Q4

REPORT INFORMATION
  Report Type: Spontaneous
  Country: JP (occurrence: JP)
  Receive Date: 20141125
  Receipt Date: 20141125
  Transmission Date: 20150529
  Serious: Yes (Death, Hospitalization, Other)
  Sender: FDA-Public Use
  Company Number: JP-JNJFOC-20141114384

PATIENT
  Age: 58 Year
  Sex: Male

DRUGS (18)
  1. NOSCAPINE [Suspect]
     Active Substance: NOSCAPINE
     Indication: INFLUENZA
     Route: 065
  2. LYSOZYME HYDROCHLORIDE [Suspect]
     Active Substance: LYSOZYME HYDROCHLORIDE
     Indication: INFLUENZA
     Route: 065
  3. DIHYDROCODEINE PHOSPHATE [Suspect]
     Active Substance: DIHYDROCODEINE PHOSPHATE
     Indication: INFLUENZA
     Route: 065
  4. POTASSIUM GUAIACOLSULFONATE [Suspect]
     Active Substance: POTASSIUM GUAIACOLSULFONATE
     Indication: INFLUENZA
     Route: 065
  5. CAFFEINE. [Suspect]
     Active Substance: CAFFEINE
     Indication: INFLUENZA
     Route: 065
  6. LYSOZYME HYDROCHLORIDE [Suspect]
     Active Substance: LYSOZYME HYDROCHLORIDE
     Indication: NASOPHARYNGITIS
     Route: 065
  7. ACETAMINOPHEN. [Suspect]
     Active Substance: ACETAMINOPHEN
     Indication: INFLUENZA
     Route: 065
  8. ACETAMINOPHEN. [Suspect]
     Active Substance: ACETAMINOPHEN
     Indication: NASOPHARYNGITIS
     Route: 065
  9. BENFOTIAMINE [Suspect]
     Active Substance: BENFOTIAMINE
     Indication: NASOPHARYNGITIS
     Route: 065
  10. DIHYDROCODEINE PHOSPHATE [Suspect]
     Active Substance: DIHYDROCODEINE PHOSPHATE
     Indication: NASOPHARYNGITIS
     Route: 065
  11. NOSCAPINE [Suspect]
     Active Substance: NOSCAPINE
     Indication: NASOPHARYNGITIS
     Route: 065
  12. DL-METHYLEPHEDRINE HYDROCHLORIDE [Suspect]
     Active Substance: METHYLEPHEDRINE HYDROCHLORIDE, (+/-)-
     Indication: INFLUENZA
     Route: 065
  13. CLEMASTINE FUMARATE. [Suspect]
     Active Substance: CLEMASTINE FUMARATE
     Indication: NASOPHARYNGITIS
     Route: 065
  14. CLEMASTINE FUMARATE. [Suspect]
     Active Substance: CLEMASTINE FUMARATE
     Indication: INFLUENZA
     Route: 065
  15. DL-METHYLEPHEDRINE HYDROCHLORIDE [Suspect]
     Active Substance: METHYLEPHEDRINE HYDROCHLORIDE, (+/-)-
     Indication: NASOPHARYNGITIS
     Route: 065
  16. BENFOTIAMINE [Suspect]
     Active Substance: BENFOTIAMINE
     Indication: INFLUENZA
     Route: 065
  17. POTASSIUM GUAIACOLSULFONATE [Suspect]
     Active Substance: POTASSIUM GUAIACOLSULFONATE
     Indication: NASOPHARYNGITIS
     Route: 065
  18. CAFFEINE. [Suspect]
     Active Substance: CAFFEINE
     Indication: NASOPHARYNGITIS
     Route: 065

REACTIONS (7)
  - Sepsis [Fatal]
  - Erythrophagocytosis [None]
  - Product use issue [Unknown]
  - Histiocytosis haematophagic [Fatal]
  - Drug reaction with eosinophilia and systemic symptoms [Fatal]
  - Multi-organ failure [Fatal]
  - Staphylococcal skin infection [Unknown]
